FAERS Safety Report 24779043 (Version 3)
Quarter: 2025Q1

REPORT INFORMATION
  Report Type: Other
  Country: US (occurrence: US)
  Receive Date: 20241226
  Receipt Date: 20250127
  Transmission Date: 20250409
  Serious: Yes (Other)
  Sender: TRAVERE THERAPEUTICS
  Company Number: US-TRAVERE-2024TVT01292

PATIENT
  Age: 78 Year
  Sex: Male

DRUGS (2)
  1. FILSPARI [Suspect]
     Active Substance: SPARSENTAN
     Indication: IgA nephropathy
     Route: 048
     Dates: start: 20241209
  2. FILSPARI [Suspect]
     Active Substance: SPARSENTAN
     Route: 048
     Dates: start: 202412

REACTIONS (5)
  - Hypertension [Recovering/Resolving]
  - Renal impairment [Unknown]
  - Insomnia [Unknown]
  - Dizziness [Unknown]
  - Feeling abnormal [Unknown]
